FAERS Safety Report 11278050 (Version 4)
Quarter: 2015Q4

REPORT INFORMATION
  Report Type: Spontaneous
  Country: JP (occurrence: JP)
  Receive Date: 20150717
  Receipt Date: 20151022
  Transmission Date: 20160304
  Serious: Yes (Hospitalization)
  Sender: FDA-Public Use
  Company Number: JP-AMGEN-JPNSP2015071168

PATIENT
  Age: 80 Year
  Sex: Male

DRUGS (13)
  1. NIKORANMART [Concomitant]
     Active Substance: NICORANDIL
     Dosage: 5 UNK, BID
     Route: 065
  2. CANDESARTAN [Concomitant]
     Active Substance: CANDESARTAN
     Dosage: 8 UNK, QD
     Route: 065
  3. ATORVASTATIN [Concomitant]
     Active Substance: ATORVASTATIN
     Dosage: 5 UNK, BID
     Route: 065
  4. ZOMETA [Suspect]
     Active Substance: ZOLEDRONIC ACID
     Indication: PRODUCT USED FOR UNKNOWN INDICATION
     Dosage: UNK
     Route: 065
  5. DILTIAZEM [Concomitant]
     Active Substance: DILTIAZEM
     Dosage: 100 UNK, QD
     Route: 065
  6. ZOLADEX [Concomitant]
     Active Substance: GOSERELIN ACETATE
     Indication: PROSTATE CANCER
     Dosage: 10.8 UNK, QD
     Route: 065
  7. BAYASPIRIN [Concomitant]
     Active Substance: ASPIRIN
     Dosage: 100 UNK, QD
     Route: 065
  8. BROTIZOLAM [Concomitant]
     Active Substance: BROTIZOLAM
     Dosage: 0.5 UNK, QD
     Route: 065
  9. MICARDIS [Concomitant]
     Active Substance: TELMISARTAN
     Dosage: 40 UNK, QD
     Route: 065
  10. TAMSLON [Concomitant]
     Active Substance: TAMSULOSIN
     Dosage: 0.2 UNK, QD
     Route: 065
  11. PLAVIX [Concomitant]
     Active Substance: CLOPIDOGREL BISULFATE
     Dosage: 75 UNK, QD
     Route: 065
  12. RANMARK [Suspect]
     Active Substance: DENOSUMAB
     Indication: METASTASES TO BONE
     Dosage: 120 MG, Q4WK
     Route: 058
     Dates: start: 20131021, end: 201502
  13. GLACTIV [Concomitant]
     Active Substance: SITAGLIPTIN
     Dosage: 50 UNK, QD
     Route: 065

REACTIONS (1)
  - Atypical fracture [Not Recovered/Not Resolved]

NARRATIVE: CASE EVENT DATE: 20150225
